FAERS Safety Report 9355796 (Version 1)
Quarter: 2013Q2

REPORT INFORMATION
  Report Type: Spontaneous
  Country: DE (occurrence: DE)
  Receive Date: 20130619
  Receipt Date: 20130619
  Transmission Date: 20140414
  Serious: Yes (Congenital Anomaly, Other)
  Sender: FDA-Public Use
  Company Number: GXKR2013DE002134

PATIENT
  Sex: 0

DRUGS (3)
  1. METHOTREXATE [Suspect]
     Dosage: MATERNAL DOSE: 15 MG, QW (BEGIN 1 YEAR PRE CONCEPTION)
     Route: 064
     Dates: start: 20120426, end: 20120529
  2. INFLIXIMAB [Suspect]
     Dosage: MATERNAL DOSE: 280 [MG/D ]
     Route: 064
     Dates: start: 20120524, end: 20120524
  3. FOLIC ACID [Concomitant]
     Dosage: GESTATIONAL WEEK 2.4 TO 37.4
     Route: 064
     Dates: start: 20120515, end: 20130115

REACTIONS (2)
  - Small for dates baby [Unknown]
  - Pelvi-ureteric obstruction [Recovered/Resolved with Sequelae]
